FAERS Safety Report 15921226 (Version 3)
Quarter: 2019Q1

REPORT INFORMATION
  Report Type: Spontaneous
  Country: NL (occurrence: NL)
  Receive Date: 20190205
  Receipt Date: 20190325
  Transmission Date: 20190417
  Serious: Yes (Hospitalization)
  Sender: FDA-Public Use
  Company Number: NL-ACTELION-A-CH2019-185778

PATIENT
  Age: 56 Year
  Sex: Female

DRUGS (2)
  1. UPTRAVI [Suspect]
     Active Substance: SELEXIPAG
     Dosage: 200 MCG, BID
     Route: 048
  2. UPTRAVI [Suspect]
     Active Substance: SELEXIPAG
     Indication: IMMUNE SYSTEM DISORDER
     Dosage: 800 MCG, BID
     Route: 048

REACTIONS (3)
  - Hospitalisation [Unknown]
  - Hepatic function abnormal [Unknown]
  - Product supply issue [Unknown]

NARRATIVE: CASE EVENT DATE: 20190101
